FAERS Safety Report 11755574 (Version 1)
Quarter: 2015Q4

REPORT INFORMATION
  Report Type: Spontaneous
  Country: US (occurrence: US)
  Receive Date: 20151119
  Receipt Date: 20151119
  Transmission Date: 20160304
  Serious: No
  Sender: FDA-Public Use
  Company Number: US-PFIZER INC-2015393438

PATIENT
  Sex: Male
  Weight: 80 kg

DRUGS (2)
  1. RISPERDAL [Concomitant]
     Active Substance: RISPERIDONE
     Dosage: 37.5 DF, WEEKLY, INJECTIONS, 1X/WEEK
  2. GEODON [Suspect]
     Active Substance: ZIPRASIDONE HYDROCHLORIDE\ZIPRASIDONE MESYLATE
     Dosage: 30 MG, 1X/DAY
     Route: 048

REACTIONS (2)
  - Sperm concentration decreased [Recovered/Resolved]
  - Erectile dysfunction [Recovered/Resolved]
